FAERS Safety Report 6305156-1 (Version None)
Quarter: 2009Q3

REPORT INFORMATION
  Report Type: 
  Country: None (occurrence: None)
  Receive Date: 20090731
  Receipt Date: 20080919
  Transmission Date: 20100115
  Serious: Yes (Hospitalization)
  Sender: FDA-Public Use
  Company Number: MIN-00411

PATIENT
  Sex: Male

DRUGS (1)
  1. MINOCIN [Suspect]
     Indication: ACNE

REACTIONS (1)
  - ARTHRALGIA [None]
